FAERS Safety Report 5243052-1 (Version None)
Quarter: 2007Q1

REPORT INFORMATION
  Report Type: 
  Country: None (occurrence: None)
  Receive Date: 20070220
  Receipt Date: 20070220
  Transmission Date: 20070707
  Serious: No
  Sender: FDA-Public Use
  Company Number: None

PATIENT

DRUGS (2)
  1. JANUVIA [Suspect]
  2. ENJUVIA [Suspect]

REACTIONS (1)
  - MEDICATION ERROR [None]
